FAERS Safety Report 7055752-1 (Version None)
Quarter: 2010Q4

REPORT INFORMATION
  Report Type: 
  Country: None (occurrence: None)
  Receive Date: 20101019
  Receipt Date: 20101019
  Transmission Date: 20110411
  Serious: Yes (Death, Other)
  Sender: FDA-Public Use
  Company Number: None

PATIENT

DRUGS (4)
  1. RISPERIDONE [Suspect]
  2. OXYCONTIN [Suspect]
  3. XANAX [Suspect]
  4. LYRICA [Suspect]

REACTIONS (2)
  - MONOPLEGIA [None]
  - OEDEMA [None]
